FAERS Safety Report 5004097-X (Version None)
Quarter: 2006Q2

REPORT INFORMATION
  Report Type: 
  Country: None (occurrence: None)
  Receive Date: 20060511
  Receipt Date: 20060501
  Transmission Date: 20061013
  Serious: Yes (Other)
  Sender: FDA-Public Use
  Company Number: 2006060545

PATIENT
  Age: 73 Year
  Sex: Female
  Weight: 73.4827 kg

DRUGS (3)
  1. CELEBREX [Suspect]
     Indication: ARTHRALGIA
     Dosage: 100 MG (100 MG, 1 IN 1 D)
  2. DRUG, UNSPECIFIED [Concomitant]
  3. BIAXIN [Concomitant]

REACTIONS (10)
  - ARTHRALGIA [None]
  - CONDITION AGGRAVATED [None]
  - DIFFICULTY IN WALKING [None]
  - DRUG INEFFECTIVE [None]
  - INSOMNIA [None]
  - INTRAOCULAR PRESSURE INCREASED [None]
  - LOWER RESPIRATORY TRACT INFECTION [None]
  - NERVOUSNESS [None]
  - PNEUMONIA [None]
  - SINUSITIS [None]
